FAERS Safety Report 4842638-3 (Version None)
Quarter: 2005Q4

REPORT INFORMATION
  Report Type: 
  Country: None (occurrence: None)
  Receive Date: 20051201
  Receipt Date: 20051130
  Transmission Date: 20060501
  Serious: Yes (Other)
  Sender: FDA-Public Use
  Company Number: DE-GLAXOSMITHKLINE-D0048137A

PATIENT
  Sex: Male
  Weight: 94 kg

DRUGS (3)
  1. IMIGRAN NASAL SPRAY [Suspect]
     Indication: MIGRAINE
     Dosage: 20MG AS REQUIRED
     Route: 045
     Dates: start: 20000101
  2. BETA-BLOCKERS [Concomitant]
     Indication: MIGRAINE PROPHYLAXIS
     Route: 065
  3. ALMOGRAN [Concomitant]
     Indication: MIGRAINE
     Route: 065

REACTIONS (2)
  - GAMMA-GLUTAMYLTRANSFERASE INCREASED [None]
  - HEPATIC ENZYME INCREASED [None]
